FAERS Safety Report 13763331 (Version 1)
Quarter: 2017Q3

REPORT INFORMATION
  Report Type: Spontaneous
  Country: US (occurrence: US)
  Receive Date: 20170718
  Receipt Date: 20170718
  Transmission Date: 20171127
  Serious: Yes (Other)
  Sender: FDA-Public Use
  Company Number: US-MYLANLABS-2017M1042022

PATIENT

DRUGS (3)
  1. WARFARIN [Suspect]
     Active Substance: WARFARIN
     Indication: ATRIAL SEPTAL DEFECT
     Route: 065
  2. WARFARIN [Suspect]
     Active Substance: WARFARIN
     Indication: HYPERTROPHIC CARDIOMYOPATHY
  3. WARFARIN [Suspect]
     Active Substance: WARFARIN
     Indication: PULMONARY HYPERTENSION

REACTIONS (3)
  - Hemiparesis [Recovering/Resolving]
  - Hydrocephalus [Recovering/Resolving]
  - Tumour haemorrhage [Recovering/Resolving]
